FAERS Safety Report 7538538-0 (Version None)
Quarter: 2011Q2

REPORT INFORMATION
  Report Type: 
  Country: None (occurrence: None)
  Receive Date: 20110610
  Receipt Date: 20110601
  Transmission Date: 20111010
  Serious: Yes (Life-Threatening, Hospitalization, Other)
  Sender: FDA-Public Use
  Company Number: US-BIOGENIDEC-2011BI020608

PATIENT
  Age: 26 Year
  Sex: Female

DRUGS (4)
  1. VITAMIN B-12 [Concomitant]
  2. TYSABRI [Suspect]
     Indication: MULTIPLE SCLEROSIS
     Route: 042
     Dates: start: 20080307
  3. ADDERALL 10 [Concomitant]
  4. VITAMIN D [Concomitant]

REACTIONS (1)
  - PULMONARY EMBOLISM [None]
